FAERS Safety Report 9669588 (Version 1)
Quarter: 2013Q4

REPORT INFORMATION
  Report Type: Spontaneous
  Country: US (occurrence: US)
  Receive Date: 20131105
  Receipt Date: 20131105
  Transmission Date: 20140711
  Serious: Yes (Other)
  Sender: FDA-Public Use
  Company Number: US-TEVA-441633USA

PATIENT
  Sex: Female
  Weight: 108.51 kg

DRUGS (3)
  1. PARAGARD 380A [Suspect]
     Indication: CONTRACEPTION
     Route: 015
     Dates: start: 2000, end: 20131022
  2. LISINOPRIL [Concomitant]
     Indication: HYPERTENSION
     Dosage: 20 MILLIGRAM DAILY;
     Route: 048
  3. PREVACID [Concomitant]
     Indication: BARRETT^S OESOPHAGUS

REACTIONS (2)
  - Haemorrhage [Unknown]
  - Off label use [Recovered/Resolved]
